FAERS Safety Report 10396615 (Version 3)
Quarter: 2014Q3

REPORT INFORMATION
  Report Type: Spontaneous
  Country: US (occurrence: US)
  Receive Date: 20140820
  Receipt Date: 20140923
  Transmission Date: 20150326
  Serious: Yes (Hospitalization)
  Sender: FDA-Public Use
  Company Number: US-GLAXOSMITHKLINE-A0804239A

PATIENT
  Sex: Male

DRUGS (1)
  1. AVANDIA [Suspect]
     Active Substance: ROSIGLITAZONE MALEATE
     Indication: DIABETES MELLITUS
     Dosage: 8MG PER DAY
     Route: 048
     Dates: start: 200210, end: 200904

REACTIONS (6)
  - Transient ischaemic attack [Unknown]
  - Cardiac failure congestive [Unknown]
  - Obstruction [Unknown]
  - Depression [Unknown]
  - Coronary artery disease [Unknown]
  - Myocardial infarction [Unknown]
